FAERS Safety Report 15292522 (Version 1)
Quarter: 2018Q3

REPORT INFORMATION
  Report Type: Spontaneous
  Country: FR (occurrence: FR)
  Receive Date: 20180818
  Receipt Date: 20180818
  Transmission Date: 20181010
  Serious: Yes (Death)
  Sender: FDA-Public Use
  Company Number: FR-TEVA-2018-FR-941551

PATIENT
  Age: 31 Year
  Sex: Male
  Weight: 69.7 kg

DRUGS (2)
  1. QUETIAPINE. [Suspect]
     Active Substance: QUETIAPINE
     Indication: PSYCHOTIC DISORDER
     Dosage: 450 MILLIGRAM DAILY;
     Route: 048
     Dates: end: 20180513
  2. LEVOMEPROMAZINE [Suspect]
     Active Substance: LEVOMEPROMAZINE
     Indication: PSYCHOTIC DISORDER
     Dosage: 40 DROPS MORNING, 20 AT NOON, 50 NIGHT AND 20 DROPS IN SB
     Route: 048
     Dates: start: 201805

REACTIONS (2)
  - Vomiting [Fatal]
  - Sudden death [Fatal]

NARRATIVE: CASE EVENT DATE: 20180513
